FAERS Safety Report 21938019 (Version 1)
Quarter: 2023Q1

REPORT INFORMATION
  Report Type: Spontaneous
  Country: US (occurrence: None)
  Receive Date: 20230201
  Receipt Date: 20230201
  Transmission Date: 20230417
  Serious: No
  Sender: FDA-Public Use
  Company Number: None

PATIENT
  Age: 73 Year
  Sex: Female
  Weight: 67.5 kg

DRUGS (3)
  1. BUPRENORPHINE [Suspect]
     Active Substance: BUPRENORPHINE
     Indication: Pain
     Dates: start: 20230125, end: 20230129
  2. BUPRENORPHINE [Suspect]
     Active Substance: BUPRENORPHINE
     Indication: Fibromyalgia
  3. oxycodone 10mg 3xdaily [Concomitant]

REACTIONS (5)
  - Tremor [None]
  - Feeling abnormal [None]
  - Muscle twitching [None]
  - Insomnia [None]
  - Dyskinesia [None]

NARRATIVE: CASE EVENT DATE: 20230128
